FAERS Safety Report 8339584-X (Version None)
Quarter: 2012Q2

REPORT INFORMATION
  Report Type: 
  Country: None (occurrence: None)
  Receive Date: 20120507
  Receipt Date: 20120504
  Transmission Date: 20120825
  Serious: Yes (Other)
  Sender: FDA-Public Use
  Company Number: US-PFIZER INC-2012109961

PATIENT
  Sex: Male
  Weight: 90.703 kg

DRUGS (2)
  1. CHANTIX [Suspect]
     Indication: SMOKING CESSATION THERAPY
     Dosage: 0.5 MG, DAILY
     Dates: start: 20120108, end: 20120101
  2. CHANTIX [Suspect]
     Dosage: 1 MG, 2X/DAY
     Dates: start: 20120101, end: 20120203

REACTIONS (6)
  - FEELING ABNORMAL [None]
  - ANXIETY [None]
  - VOMITING [None]
  - DEPRESSED MOOD [None]
  - MALAISE [None]
  - PANIC ATTACK [None]
